FAERS Safety Report 12073233 (Version 2)
Quarter: 2016Q1

REPORT INFORMATION
  Report Type: Spontaneous
  Country: US (occurrence: US)
  Receive Date: 20160212
  Receipt Date: 20160217
  Transmission Date: 20160526
  Serious: Yes (Other)
  Sender: FDA-Public Use
  Company Number: CHPA2015US012237

PATIENT
  Age: 93 Year
  Sex: Female

DRUGS (2)
  1. PREVACID [Suspect]
     Active Substance: LANSOPRAZOLE
     Indication: GASTROOESOPHAGEAL REFLUX DISEASE
     Dosage: 4 DF, DAY
     Route: 048
  2. PREVACID [Suspect]
     Active Substance: LANSOPRAZOLE
     Dosage: UNK
     Route: 048

REACTIONS (7)
  - Oesophageal carcinoma [Not Recovered/Not Resolved]
  - Eructation [Unknown]
  - Oesophageal irritation [Unknown]
  - Off label use [Unknown]
  - Incorrect drug administration duration [Unknown]
  - Dysphagia [Unknown]
  - Chest pain [Unknown]

NARRATIVE: CASE EVENT DATE: 2015
